FAERS Safety Report 13659393 (Version 5)
Quarter: 2017Q4

REPORT INFORMATION
  Report Type: Spontaneous
  Country: US (occurrence: US)
  Receive Date: 20170616
  Receipt Date: 20171013
  Transmission Date: 20180320
  Serious: Yes (Other)
  Sender: FDA-Public Use
  Company Number: US-009507513-1706USA005777

PATIENT
  Age: 73 Year
  Sex: Female

DRUGS (4)
  1. METFORMIN [Suspect]
     Active Substance: METFORMIN HYDROCHLORIDE
     Dosage: 500 MG, BID
  2. JANUVIA [Suspect]
     Active Substance: SITAGLIPTIN PHOSPHATE
     Indication: DIABETES MELLITUS
     Dosage: 100 MG, (DAILY) QD
     Route: 048
     Dates: start: 20140923, end: 20170313
  3. GLIPIZIDE. [Suspect]
     Active Substance: GLIPIZIDE
     Dosage: 10 MG, QD
  4. METFORMIN [Suspect]
     Active Substance: METFORMIN HYDROCHLORIDE
     Dosage: UNK

REACTIONS (6)
  - Gastrointestinal haemorrhage [Unknown]
  - Helicobacter infection [Recovered/Resolved]
  - Ulcer haemorrhage [Recovered/Resolved]
  - Gastric ulcer [Unknown]
  - Blood glucose increased [Recovered/Resolved]
  - Nausea [Unknown]

NARRATIVE: CASE EVENT DATE: 201611
